FAERS Safety Report 15749733 (Version 1)
Quarter: 2018Q4

REPORT INFORMATION
  Report Type: Spontaneous
  Country: US (occurrence: US)
  Receive Date: 20181221
  Receipt Date: 20181221
  Transmission Date: 20190205
  Serious: No
  Sender: FDA-Public Use
  Company Number: US-PFIZER INC-2018520424

PATIENT
  Age: 23 Year
  Sex: Male

DRUGS (3)
  1. EPLERENONE. [Suspect]
     Active Substance: EPLERENONE
     Indication: CARDIAC DISORDER
     Dosage: UNK
  2. INSPRA [Suspect]
     Active Substance: EPLERENONE
     Indication: CARDIAC DISORDER
     Dosage: 12.5 MG, UNK
  3. SPIRONOLACTONE. [Suspect]
     Active Substance: SPIRONOLACTONE
     Indication: CARDIAC DISORDER
     Dosage: UNK

REACTIONS (2)
  - Duchenne muscular dystrophy [Unknown]
  - Drug ineffective [Unknown]
